FAERS Safety Report 17988601 (Version 2)
Quarter: 2020Q3

REPORT INFORMATION
  Report Type: Spontaneous
  Country: US (occurrence: US)
  Receive Date: 20200707
  Receipt Date: 20200717
  Transmission Date: 20201103
  Serious: No
  Sender: FDA-Public Use
  Company Number: US-PFIZER INC-2020250805

PATIENT
  Age: 74 Year
  Sex: Male
  Weight: 81.63 kg

DRUGS (13)
  1. DOXYCYCLINE CALCIUM [Concomitant]
     Active Substance: DOXYCYCLINE CALCIUM
     Indication: AMYLOIDOSIS
     Dosage: 100 MG, 2X/DAY
     Dates: start: 201807
  2. LISINOPRIL. [Concomitant]
     Active Substance: LISINOPRIL
     Indication: BLOOD PRESSURE MANAGEMENT
     Dosage: 5 MG, 2X/DAY
  3. FENOFIBRATE. [Concomitant]
     Active Substance: FENOFIBRATE
     Indication: BLOOD TRIGLYCERIDES ABNORMAL
     Dosage: 160 MG, DAILY
     Dates: start: 2018
  4. XARELTO [Concomitant]
     Active Substance: RIVAROXABAN
     Indication: ATRIAL FIBRILLATION
     Dosage: 20 MG, DAILY
     Dates: start: 2016
  5. XARELTO [Concomitant]
     Active Substance: RIVAROXABAN
     Indication: COAGULOPATHY
  6. VYNDAQEL [Suspect]
     Active Substance: TAFAMIDIS MEGLUMINE
     Indication: CARDIAC AMYLOIDOSIS
     Dosage: 80 MG, DAILY
     Route: 048
     Dates: start: 20200101
  7. DILTIAZEM. [Concomitant]
     Active Substance: DILTIAZEM
     Indication: HEART RATE IRREGULAR
     Dosage: 120 MG, 2X/DAY
  8. PRAVASTATIN. [Concomitant]
     Active Substance: PRAVASTATIN
     Indication: LIPIDS ABNORMAL
     Dosage: 80 MG, DAILY
     Dates: start: 2017
  9. FUROSEMIDE. [Concomitant]
     Active Substance: FUROSEMIDE
     Indication: FLUID IMBALANCE
     Dosage: 160 MG, DAILY (4 DAILY)
     Dates: start: 2018
  10. FENOFIBRATE. [Concomitant]
     Active Substance: FENOFIBRATE
     Indication: SUPPLEMENTATION THERAPY
  11. ASPIRIN [ACETYLSALICYLIC ACID] [Concomitant]
     Active Substance: ASPIRIN
     Indication: ATRIAL FIBRILLATION
     Dosage: 81 MG, DAILY
     Dates: start: 2015
  12. VYNDAQEL [Suspect]
     Active Substance: TAFAMIDIS MEGLUMINE
     Indication: AMYLOIDOSIS
  13. OMEPRAZOLE. [Concomitant]
     Active Substance: OMEPRAZOLE
     Indication: GASTROOESOPHAGEAL REFLUX DISEASE
     Dosage: 20 MG, DAILY

REACTIONS (2)
  - Fluid overload [Unknown]
  - Product dose omission issue [Unknown]
